FAERS Safety Report 5819152-1 (Version None)
Quarter: 2008Q3

REPORT INFORMATION
  Report Type: 
  Country: None (occurrence: None)
  Receive Date: 20080723
  Receipt Date: 20080718
  Transmission Date: 20090109
  Serious: Yes (Hospitalization, Other)
  Sender: FDA-Public Use
  Company Number: A0733243A

PATIENT
  Age: 52 Year
  Sex: Male
  Weight: 86.4 kg

DRUGS (9)
  1. AVANDIA [Suspect]
     Dosage: 4MG TWICE PER DAY
     Route: 048
     Dates: start: 20050616, end: 20060901
  2. AVANDAMET [Suspect]
     Route: 048
     Dates: start: 20030625, end: 20070101
  3. LORTAB [Concomitant]
     Dosage: 10MG TWICE PER DAY
  4. LIPITOR [Concomitant]
     Dosage: 10MG AT NIGHT
  5. HYZAAR [Concomitant]
     Dosage: 100MG PER DAY
  6. UNKNOWN BLOOD PRESSURE MEDICATION [Concomitant]
  7. METFORMIN [Concomitant]
  8. METOPROLOL TARTRATE [Concomitant]
  9. HYDROCODONE BITARTRATE AND ACETAMINOPHEN [Concomitant]

REACTIONS (5)
  - ACUTE MYOCARDIAL INFARCTION [None]
  - CARDIAC FAILURE CONGESTIVE [None]
  - CARDIOVASCULAR DISORDER [None]
  - CORONARY ARTERY DISEASE [None]
  - RENAL FAILURE ACUTE [None]
